FAERS Safety Report 10533954 (Version 1)
Quarter: 2014Q4

REPORT INFORMATION
  Report Type: Spontaneous
  Country: US (occurrence: None)
  Receive Date: 20141021
  Receipt Date: 20141021
  Transmission Date: 20150529
  Serious: Yes (Hospitalization)
  Sender: FDA-Public Use
  Company Number: None

PATIENT
  Age: 71 Year
  Sex: Male
  Weight: 96.2 kg

DRUGS (1)
  1. DOXYCYCLINE. [Suspect]
     Active Substance: DOXYCYCLINE
     Indication: ARTHROPOD-BORNE DISEASE
     Route: 048
     Dates: start: 20141007, end: 20141012

REACTIONS (2)
  - Stevens-Johnson syndrome [None]
  - Anaphylactic reaction [None]

NARRATIVE: CASE EVENT DATE: 20141012
